FAERS Safety Report 21305331 (Version 1)
Quarter: 2022Q3

REPORT INFORMATION
  Report Type: Spontaneous
  Country: US (occurrence: US)
  Receive Date: 20220907
  Receipt Date: 20220907
  Transmission Date: 20221027
  Serious: No
  Sender: FDA-Public Use
  Company Number: US-JNJFOC-20220849098

PATIENT
  Weight: 99.880 kg

DRUGS (1)
  1. XARELTO [Suspect]
     Active Substance: RIVAROXABAN
     Indication: Atrial fibrillation
     Route: 048
     Dates: start: 20220801

REACTIONS (15)
  - Malaise [Recovering/Resolving]
  - Pharyngeal swelling [Recovering/Resolving]
  - Retching [Recovering/Resolving]
  - Feeling hot [Recovering/Resolving]
  - Pruritus [Recovering/Resolving]
  - Paraesthesia [Recovering/Resolving]
  - Nasal congestion [Recovering/Resolving]
  - Swelling [Recovering/Resolving]
  - Dizziness [Recovering/Resolving]
  - Nausea [Recovering/Resolving]
  - Sleep disorder due to a general medical condition [Recovering/Resolving]
  - Asthenia [Recovering/Resolving]
  - Frustration tolerance decreased [Recovering/Resolving]
  - Feeling abnormal [Recovering/Resolving]
  - Flushing [Recovering/Resolving]
